FAERS Safety Report 20097007 (Version 1)
Quarter: 2021Q4

REPORT INFORMATION
  Report Type: Spontaneous
  Country: BG (occurrence: BG)
  Receive Date: 20211122
  Receipt Date: 20211122
  Transmission Date: 20220303
  Serious: Yes (Other)
  Sender: FDA-Public Use
  Company Number: BG-BRISTOL-MYERS SQUIBB COMPANY-BMS-2021-124942

PATIENT
  Age: 51 Year
  Sex: Female

DRUGS (2)
  1. OPDIVO [Suspect]
     Active Substance: NIVOLUMAB
     Indication: Malignant melanoma
     Dosage: UNK
     Route: 065
     Dates: start: 20211004
  2. OPDIVO [Suspect]
     Active Substance: NIVOLUMAB
     Dosage: UNK
     Route: 065
     Dates: start: 20211018

REACTIONS (7)
  - Diabetic metabolic decompensation [Unknown]
  - Diabetic ketoacidosis [Unknown]
  - Tachycardia [Unknown]
  - Nausea [Unknown]
  - Vomiting [Unknown]
  - Brain oedema [Unknown]
  - Aphasia [Unknown]
